FAERS Safety Report 4567366-3 (Version None)
Quarter: 2005Q1

REPORT INFORMATION
  Report Type: 
  Country: None (occurrence: None)
  Receive Date: 20050127
  Receipt Date: 20050111
  Transmission Date: 20050727
  Serious: Yes (Hospitalization)
  Sender: FDA-Public Use
  Company Number: 2004BI001569

PATIENT
  Age: 56 Year
  Sex: Female

DRUGS (10)
  1. AVONEX [Suspect]
     Indication: MULTIPLE SCLEROSIS
     Dosage: 30 UG; QW; IM
     Route: 030
     Dates: start: 20020831, end: 20030112
  2. AVONEX [Suspect]
     Indication: MULTIPLE SCLEROSIS
     Dosage: 30 UG; QW; IM
     Route: 030
     Dates: start: 20030112, end: 20040901
  3. AVONEX [Suspect]
     Indication: MULTIPLE SCLEROSIS
     Dosage: 30 UG; QW; IM
     Route: 030
     Dates: start: 20040901
  4. DILANTIN [Concomitant]
  5. ALDACTONE [Concomitant]
  6. LISINOPRIL [Concomitant]
  7. COLCHICINE [Concomitant]
  8. ZANAFLEX [Concomitant]
  9. CALAN [Concomitant]
  10. BUMEX [Concomitant]

REACTIONS (2)
  - INFLUENZA [None]
  - MULTIPLE SCLEROSIS [None]
